APPROVED DRUG PRODUCT: TOLAZAMIDE
Active Ingredient: TOLAZAMIDE
Strength: 500MG
Dosage Form/Route: TABLET;ORAL
Application: A070244 | Product #001
Applicant: WATSON LABORATORIES INC
Approved: Aug 1, 1986 | RLD: No | RS: No | Type: DISCN